FAERS Safety Report 5602456-5 (Version None)
Quarter: 2008Q1

REPORT INFORMATION
  Report Type: 
  Country: None (occurrence: None)
  Receive Date: 20080125
  Receipt Date: 20080125
  Transmission Date: 20080703
  Serious: Yes (Other)
  Sender: FDA-Public Use
  Company Number: A0705427A

PATIENT
  Sex: Female

DRUGS (1)
  1. ALLI [Suspect]
     Route: 048
     Dates: start: 20080123

REACTIONS (7)
  - CHILLS [None]
  - DIARRHOEA [None]
  - ERUCTATION [None]
  - GASTROENTERITIS VIRAL [None]
  - NAUSEA [None]
  - PAIN [None]
  - VOMITING [None]
